FAERS Safety Report 16937037 (Version 2)
Quarter: 2019Q4

REPORT INFORMATION
  Report Type: Report from Study
  Country: JP (occurrence: JP)
  Receive Date: 20191018
  Receipt Date: 20191121
  Transmission Date: 20200122
  Serious: Yes (Hospitalization)
  Sender: FDA-Public Use
  Company Number: JP-SEATTLE GENETICS-2019SGN03553

PATIENT
  Age: 17 Year
  Sex: Male
  Weight: 66.85 kg

DRUGS (5)
  1. VINBLASTINE [Suspect]
     Active Substance: VINBLASTINE
     Indication: HODGKIN^S DISEASE
     Dosage: 6 MILLIGRAM/SQ. METER, Q2WEEKS
     Route: 042
     Dates: start: 20190606, end: 20191023
  2. DOXORUBICIN [Suspect]
     Active Substance: DOXORUBICIN
     Indication: HODGKIN^S DISEASE
     Dosage: 25 MILLIGRAM/SQ. METER, Q2WEEKS
     Route: 042
     Dates: start: 20190606, end: 20191023
  3. BRENTUXIMAB VEDOTIN [Suspect]
     Active Substance: BRENTUXIMAB VEDOTIN
     Indication: HODGKIN^S DISEASE
     Dosage: 48 MILLIGRAM/SQ. METER, Q2WEEKS
     Route: 042
     Dates: start: 20190606, end: 20191023
  4. DACARBAZINE. [Suspect]
     Active Substance: DACARBAZINE
     Indication: HODGKIN^S DISEASE
     Dosage: 375 MILLIGRAM/SQ. METER, Q2WEEKS
     Route: 042
     Dates: start: 20190606, end: 20191023
  5. DAIPHEN [Suspect]
     Active Substance: SULFAMETHOXAZOLE\TRIMETHOPRIM
     Indication: PRODUCT USED FOR UNKNOWN INDICATION
     Dosage: UNK
     Route: 065

REACTIONS (1)
  - Neutrophil count decreased [Recovered/Resolved]

NARRATIVE: CASE EVENT DATE: 20191009
